FAERS Safety Report 5739689-3 (Version None)
Quarter: 2008Q2

REPORT INFORMATION
  Report Type: 
  Country: None (occurrence: None)
  Receive Date: 20080513
  Receipt Date: 20080501
  Transmission Date: 20081010
  Serious: No
  Sender: FDA-Public Use
  Company Number: 2008-176696-NL

PATIENT
  Sex: Male

DRUGS (2)
  1. PANCURONIUM BROMIDE [Suspect]
     Indication: RESPIRATORY DISORDER
     Dosage: 8 MG
  2. MIDAZOLAM HCL [Concomitant]

REACTIONS (1)
  - QUADRIPLEGIA [None]
